FAERS Safety Report 4757002-5 (Version None)
Quarter: 2005Q3

REPORT INFORMATION
  Report Type: 
  Country: None (occurrence: None)
  Receive Date: 20050830
  Receipt Date: 20050825
  Transmission Date: 20060218
  Serious: Yes (Death)
  Sender: FDA-Public Use
  Company Number: MY-MERCK-0508MYS00008

PATIENT

DRUGS (1)
  1. CANCIDAS [Suspect]
     Route: 065

REACTIONS (1)
  - DEATH [None]
